FAERS Safety Report 5118977-8 (Version None)
Quarter: 2006Q3

REPORT INFORMATION
  Report Type: 
  Country: None (occurrence: None)
  Receive Date: 20060927
  Receipt Date: 20060919
  Transmission Date: 20061208
  Serious: Yes (Life-Threatening, Hospitalization)
  Sender: FDA-Public Use
  Company Number: 2006-02420

PATIENT
  Sex: Male
  Weight: 72 kg

DRUGS (2)
  1. VELCADE [Suspect]
     Indication: MULTIPLE MYELOMA
     Dosage: 1.30 MG, INTRAVENOUS
     Route: 042
     Dates: start: 20060724, end: 20060824
  2. BENDAMUSTINE (BENDAMUSTINE HYDROCHLORIDE) SOLUTION (EXCEPT SYRUP), 25 [Suspect]
     Indication: MULTIPLE MYELOMA
     Dosage: 60.00 MG
     Dates: start: 20060724, end: 20060815

REACTIONS (2)
  - SINUS BRADYCARDIA [None]
  - THROMBOCYTOPENIA [None]
